FAERS Safety Report 8142570-6 (Version None)
Quarter: 2012Q1

REPORT INFORMATION
  Report Type: 
  Country: None (occurrence: None)
  Receive Date: 20120216
  Receipt Date: 20120213
  Transmission Date: 20120608
  Serious: Yes (Hospitalization)
  Sender: FDA-Public Use
  Company Number: 2012SP000507

PATIENT
  Age: 91 Year
  Sex: Female
  Weight: 37 kg

DRUGS (3)
  1. LUNESTA [Suspect]
     Indication: INSOMNIA
     Route: 048
  2. LOTREL [Concomitant]
     Indication: BLOOD PRESSURE
  3. ALL OTHER THERAPEUTIC PRODUCTS [Concomitant]
     Indication: MACULAR DEGENERATION
     Dates: start: 20111101

REACTIONS (5)
  - FALL [None]
  - WEIGHT DECREASED [None]
  - ABNORMAL DREAMS [None]
  - STAPHYLOCOCCAL INFECTION [None]
  - INSOMNIA [None]
